FAERS Safety Report 10446266 (Version 1)
Quarter: 2014Q3

REPORT INFORMATION
  Report Type: Spontaneous
  Country: NZ (occurrence: NZ)
  Receive Date: 20140911
  Receipt Date: 20140911
  Transmission Date: 20150326
  Serious: Yes (Other)
  Sender: FDA-Public Use
  Company Number: NZ-CIPLA LTD.-2014NZ01267

PATIENT

DRUGS (2)
  1. DONEPEZIL [Suspect]
     Active Substance: DONEPEZIL
     Dosage: 10 MG, UNK
  2. DONEPEZIL [Suspect]
     Active Substance: DONEPEZIL
     Dosage: UNK

REACTIONS (1)
  - Mania [Recovered/Resolved]
